FAERS Safety Report 9059416 (Version 1)
Quarter: 2013Q1

REPORT INFORMATION
  Report Type: Spontaneous
  Country: DE (occurrence: DE)
  Receive Date: 20130211
  Receipt Date: 20130211
  Transmission Date: 20140127
  Serious: Yes (Other)
  Sender: FDA-Public Use
  Company Number: DE-GLAXOSMITHKLINE-D0078741A

PATIENT
  Sex: Female

DRUGS (1)
  1. ELOBACT [Suspect]
     Route: 051

REACTIONS (2)
  - Deafness [Unknown]
  - Incorrect route of drug administration [Unknown]
